FAERS Safety Report 10925331 (Version 3)
Quarter: 2015Q2

REPORT INFORMATION
  Report Type: Spontaneous
  Country: US (occurrence: US)
  Receive Date: 20150318
  Receipt Date: 20150608
  Transmission Date: 20150821
  Serious: Yes (Hospitalization)
  Sender: FDA-Public Use
  Company Number: US-PFIZER INC-2015090611

PATIENT
  Age: 63 Year
  Sex: Male
  Weight: 98 kg

DRUGS (4)
  1. LYRICA [Suspect]
     Active Substance: PREGABALIN
     Indication: NEURALGIA
  2. NORCO [Concomitant]
     Active Substance: ACETAMINOPHEN\HYDROCODONE BITARTRATE
     Indication: NEURALGIA
     Dosage: 10/325 (1 AT BEDTIME)
     Dates: start: 2011
  3. LYRICA [Suspect]
     Active Substance: PREGABALIN
     Indication: NEUROPATHY PERIPHERAL
     Dosage: 75 MG, 1X/DAY
     Route: 048
     Dates: start: 20150306, end: 20150320
  4. GABAPENTIN. [Suspect]
     Active Substance: GABAPENTIN
     Indication: NEURALGIA
     Dosage: 900 MG, 1X/DAY (AT BEDTIME)
     Route: 048
     Dates: start: 2013

REACTIONS (7)
  - Hangover [Recovered/Resolved]
  - Somnolence [Recovered/Resolved]
  - Hypersomnia [Recovered/Resolved]
  - Mood swings [Unknown]
  - Fatigue [Recovered/Resolved]
  - Ligament sprain [Unknown]
  - Feeling drunk [Recovered/Resolved]

NARRATIVE: CASE EVENT DATE: 201503
